FAERS Safety Report 5631203-6 (Version None)
Quarter: 2008Q1

REPORT INFORMATION
  Report Type: 
  Country: None (occurrence: None)
  Receive Date: 20080219
  Receipt Date: 20080211
  Transmission Date: 20080703
  Serious: Yes (Other)
  Sender: FDA-Public Use
  Company Number: US-ALLERGAN-0801664US

PATIENT
  Age: 10 Year
  Sex: Male

DRUGS (9)
  1. BOTOX [Suspect]
     Indication: MUSCLE SPASTICITY
     Dosage: 575 UNITS, SINGLE
     Route: 030
     Dates: start: 20060609, end: 20060609
  2. BOTOX [Suspect]
     Dosage: 100 UNITS, SINGLE
     Route: 030
     Dates: start: 20000509, end: 20000509
  3. BOTOX [Suspect]
     Dosage: 195 UNITS, SINGLE
     Route: 030
     Dates: start: 20000928, end: 20000928
  4. BOTOX [Suspect]
     Dosage: 200 UNITS, SINGLE
     Route: 030
     Dates: start: 20010321, end: 20010321
  5. BOTOX [Suspect]
     Dosage: 185 UNITS, SINGLE
     Route: 030
     Dates: start: 20010817, end: 20010817
  6. BOTOX [Suspect]
     Dosage: 265 UNITS, SINGLE
     Route: 030
     Dates: start: 20020214, end: 20020214
  7. BOTOX [Suspect]
     Dosage: 220 UNITS, SINGLE
     Route: 030
     Dates: start: 20020911, end: 20020911
  8. BOTOX [Suspect]
     Dosage: 300 UNITS, SINGLE
     Route: 030
     Dates: start: 20030827, end: 20030827
  9. BOTOX [Suspect]
     Dosage: 400 UNITS, SINGLE
     Route: 030
     Dates: start: 20050609, end: 20050609

REACTIONS (5)
  - ASTHENIA [None]
  - DYSARTHRIA [None]
  - DYSPHAGIA [None]
  - EYELID PTOSIS [None]
  - MUSCULAR WEAKNESS [None]
